FAERS Safety Report 19500351 (Version 1)
Quarter: 2021Q3

REPORT INFORMATION
  Report Type: Spontaneous
  Country: US (occurrence: US)
  Receive Date: 20210706
  Receipt Date: 20210706
  Transmission Date: 20211014
  Serious: No
  Sender: FDA-Public Use
  Company Number: US-BIOMARINAP-US-2021-137346

PATIENT
  Sex: Male
  Weight: 8.39 kg

DRUGS (1)
  1. KUVAN [Suspect]
     Active Substance: SAPROPTERIN DIHYDROCHLORIDE
     Indication: PHENYLKETONURIA
     Dosage: 100 MILLIGRAM, QD
     Route: 048

REACTIONS (6)
  - Skin hypopigmentation [Unknown]
  - Behaviour disorder [Unknown]
  - Insomnia [Unknown]
  - Somnolence [Unknown]
  - Vomiting [Unknown]
  - Agitation [Unknown]
